FAERS Safety Report 14791455 (Version 2)
Quarter: 2018Q2

REPORT INFORMATION
  Report Type: Spontaneous
  Country: US (occurrence: US)
  Receive Date: 20180423
  Receipt Date: 20180629
  Transmission Date: 20180711
  Serious: Yes (Other)
  Sender: FDA-Public Use
  Company Number: US-BAUSCH-BL-2018-010492

PATIENT
  Age: 12 Year
  Sex: Male

DRUGS (5)
  1. PREDNISOLONE. [Suspect]
     Active Substance: PREDNISOLONE
     Indication: DERMATITIS ATOPIC
     Dosage: ORAL SOLUTION OF PREDNISOLONE 15 MG/5 ML, EQUIVALENT TO 70 MG/M2/D OF ORAL PREDNISONE
     Route: 048
  2. TRIAMCINOLONE [Concomitant]
     Active Substance: TRIAMCINOLONE
     Indication: DERMATITIS ATOPIC
     Dosage: ON AFFECTED AREAS TWICE A WEEK
  3. PIMECROLIMUS [Concomitant]
     Active Substance: PIMECROLIMUS
     Indication: DERMATITIS ATOPIC
  4. MOMETASONE [Concomitant]
     Active Substance: MOMETASONE
     Indication: DERMATITIS ATOPIC
     Dosage: 15 MG/MONTH
  5. PETROLEUM JELLY [Concomitant]
     Active Substance: PETROLATUM
     Indication: DERMATITIS ATOPIC

REACTIONS (4)
  - Cushing^s syndrome [Unknown]
  - Self-medication [Unknown]
  - Insulin resistance [Unknown]
  - Hepatotoxicity [Unknown]
